FAERS Safety Report 6245189-7 (Version None)
Quarter: 2009Q2

REPORT INFORMATION
  Report Type: 
  Country: None (occurrence: None)
  Receive Date: 20090625
  Receipt Date: 20090612
  Transmission Date: 20091009
  Serious: Yes (Hospitalization, Other)
  Sender: FDA-Public Use
  Company Number: PHHY2009JP21893

PATIENT
  Age: 39 Year
  Sex: Male
  Weight: 82 kg

DRUGS (5)
  1. CARBAMAZEPINE [Suspect]
     Indication: CONVULSION
     Dosage: 800 MG/DAY
     Route: 048
     Dates: start: 20070701, end: 20070701
  2. PHENYTOIN [Concomitant]
     Indication: CONVULSION
     Dosage: 240 MG/DAY
     Route: 048
     Dates: start: 20070701, end: 20070701
  3. ZONISAMIDE [Concomitant]
     Indication: CONVULSION
     Dosage: 300 MG/DAY
     Dates: start: 20070701, end: 20071001
  4. CLONAZEPAM [Concomitant]
     Indication: CONVULSION
     Dosage: 1.5 MG/DAY
  5. CLONAZEPAM [Concomitant]
     Dosage: 3.0 MG/DAY
     Dates: end: 20070701

REACTIONS (13)
  - ANAEMIA MACROCYTIC [None]
  - ANTIBODY TEST POSITIVE [None]
  - ATAXIA [None]
  - CENTRAL NERVOUS SYSTEM LESION [None]
  - CEREBRAL HYPERPERFUSION SYNDROME [None]
  - CONVULSION [None]
  - CORTICAL LAMINAR NECROSIS [None]
  - HEPATIC FUNCTION ABNORMAL [None]
  - HYPOAESTHESIA [None]
  - NUCLEAR MAGNETIC RESONANCE IMAGING ABNORMAL [None]
  - POSTICTAL PARALYSIS [None]
  - SUBACUTE COMBINED CORD DEGENERATION [None]
  - VITAMIN B12 DEFICIENCY [None]
